FAERS Safety Report 16677046 (Version 1)
Quarter: 2019Q3

REPORT INFORMATION
  Report Type: Spontaneous
  Country: US (occurrence: US)
  Receive Date: 20190621
  Receipt Date: 20190621
  Transmission Date: 20191004
  Serious: No
  Sender: FDA-Public Use
  Company Number: None

PATIENT
  Sex: Male

DRUGS (1)
  1. ALPROLIX [Suspect]
     Active Substance: EFTRENONACOG ALFA
     Indication: FACTOR IX DEFICIENCY
     Dosage: ?          OTHER FREQUENCY:EVERY 10 DAYS;?
     Route: 042
     Dates: start: 20150521

REACTIONS (2)
  - Tooth disorder [None]
  - Gingival disorder [None]
